FAERS Safety Report 5032432-5 (Version None)
Quarter: 2006Q2

REPORT INFORMATION
  Report Type: 
  Country: None (occurrence: None)
  Receive Date: 20060622
  Receipt Date: 20060519
  Transmission Date: 20061013
  Serious: Yes (Hospitalization)
  Sender: FDA-Public Use
  Company Number: US-ABBOTT-06P-163-0335990-00

PATIENT
  Sex: Male

DRUGS (1)
  1. OMNICEF [Suspect]
     Indication: SINUSITIS
     Route: 048
     Dates: start: 20060327, end: 20060329

REACTIONS (3)
  - OEDEMA PERIPHERAL [None]
  - PAIN OF SKIN [None]
  - RASH [None]
